FAERS Safety Report 19184085 (Version 1)
Quarter: 2021Q2

REPORT INFORMATION
  Report Type: Spontaneous
  Country: US (occurrence: US)
  Receive Date: 20210424
  Receipt Date: 20210424
  Transmission Date: 20210717
  Serious: Yes (Hospitalization)
  Sender: FDA-Public Use
  Company Number: None

PATIENT
  Age: 73 Year
  Sex: Male
  Weight: 92.1 kg

DRUGS (4)
  1. ALIMTA [Suspect]
     Active Substance: PEMETREXED DISODIUM
     Dates: end: 20210315
  2. PLAVIX [Concomitant]
     Active Substance: CLOPIDOGREL BISULFATE
  3. PEMBROLIZUMAB (MK?3475) [Suspect]
     Active Substance: PEMBROLIZUMAB
     Dates: end: 20210315
  4. ASPIRIN. [Concomitant]
     Active Substance: ASPIRIN

REACTIONS (10)
  - Fatigue [None]
  - Haemoptysis [None]
  - Hypotension [None]
  - Productive cough [None]
  - Rhinorrhoea [None]
  - Dizziness [None]
  - Pulmonary haemorrhage [None]
  - Oropharyngeal pain [None]
  - Chills [None]
  - Chest pain [None]

NARRATIVE: CASE EVENT DATE: 20210325
